FAERS Safety Report 5266373-5 (Version None)
Quarter: 2007Q1

REPORT INFORMATION
  Report Type: 
  Country: None (occurrence: None)
  Receive Date: 20070315
  Receipt Date: 20070315
  Transmission Date: 20070707
  Serious: Yes (Other)
  Sender: FDA-Public Use
  Company Number: US-GLAXOSMITHKLINE-A0643190A

PATIENT
  Sex: Male

DRUGS (1)
  1. DEBROX DROPS [Suspect]
     Route: 001

REACTIONS (3)
  - DEAFNESS [None]
  - DRUG INEFFECTIVE [None]
  - EAR DISCOMFORT [None]
